FAERS Safety Report 6755736-4 (Version None)
Quarter: 2010Q2

REPORT INFORMATION
  Report Type: 
  Country: None (occurrence: None)
  Receive Date: 20100604
  Receipt Date: 20100504
  Transmission Date: 20101027
  Serious: No
  Sender: FDA-Public Use
  Company Number: US-BAYER-201015239BCC

PATIENT
  Age: 40 Year
  Sex: Male
  Weight: 91 kg

DRUGS (1)
  1. ALEVE [Suspect]
     Indication: MUSCLE INJURY
     Dosage: TOTAL DAILY DOSE: 660 MG  UNIT DOSE: 220 MG
     Route: 048

REACTIONS (1)
  - NO ADVERSE EVENT [None]
